FAERS Safety Report 7003913-X (Version None)
Quarter: 2010Q3

REPORT INFORMATION
  Report Type: 
  Country: None (occurrence: None)
  Receive Date: 20100920
  Receipt Date: 20091222
  Transmission Date: 20110219
  Serious: No
  Sender: FDA-Public Use
  Company Number: US-WYE-H12750609

PATIENT
  Sex: Male
  Weight: 79.45 kg

DRUGS (6)
  1. PRISTIQ [Suspect]
     Indication: DEPRESSION
     Route: 048
     Dates: start: 20091221
  2. VICODIN [Concomitant]
  3. XANAX [Concomitant]
  4. AMBIEN [Concomitant]
  5. PEGASYS [Concomitant]
  6. LISINOPRIL [Concomitant]

REACTIONS (4)
  - DECREASED APPETITE [None]
  - HEADACHE [None]
  - INSOMNIA [None]
  - NAUSEA [None]
